FAERS Safety Report 4302669-9 (Version None)
Quarter: 2004Q1

REPORT INFORMATION
  Report Type: 
  Country: None (occurrence: None)
  Receive Date: 20040220
  Receipt Date: 20040210
  Transmission Date: 20041129
  Serious: No
  Sender: FDA-Public Use
  Company Number: TCI2004A00383

PATIENT
  Age: 55 Year
  Sex: Male

DRUGS (3)
  1. ACTOS [Suspect]
     Indication: DIABETES MELLITUS
     Dosage: 15 MG (15 MG, 1 IN 1 D)
     Route: 048
     Dates: start: 20000621, end: 20000627
  2. GLYBURIDE [Concomitant]
  3. SODIUM GUALENATE [Concomitant]

REACTIONS (6)
  - ATRIAL FLUTTER [None]
  - CARDIAC FAILURE CONGESTIVE [None]
  - CARDIOMEGALY [None]
  - GLYCOSYLATED HAEMOGLOBIN INCREASED [None]
  - HYPERTROPHIC CARDIOMYOPATHY [None]
  - PLEURAL EFFUSION [None]
